FAERS Safety Report 15420193 (Version 1)
Quarter: 2018Q3

REPORT INFORMATION
  Report Type: Spontaneous
  Country: US (occurrence: US)
  Receive Date: 20180924
  Receipt Date: 20180924
  Transmission Date: 20181010
  Serious: Yes (Hospitalization, Other)
  Sender: FDA-Public Use
  Company Number: US-SA-2018SA264071

PATIENT
  Age: 69 Year
  Sex: Male
  Weight: 95.71 kg

DRUGS (23)
  1. DIPHENHYDRAMINE. [Concomitant]
     Active Substance: DIPHENHYDRAMINE
     Indication: ANAPHYLACTIC REACTION
     Dosage: 25 MG, PRN
     Route: 042
     Dates: start: 20180809
  2. ASPIRIN [ACETYLSALICYLIC ACID] [Concomitant]
     Active Substance: ASPIRIN
     Dosage: 1 DF, QD
     Route: 048
     Dates: start: 20131114
  3. NORMAL SALINE [Concomitant]
     Active Substance: SODIUM CHLORIDE
     Dosage: 0.9 %, PRN
     Route: 042
     Dates: start: 20180809
  4. AMIODARONE [Concomitant]
     Active Substance: AMIODARONE
     Dosage: 200 MG, QD
     Route: 048
     Dates: start: 20180407
  5. KRILL OIL [Concomitant]
     Active Substance: DIETARY SUPPLEMENT
     Dosage: 1 DF, QD
     Route: 048
     Dates: start: 20160328
  6. ALLOPURINOL. [Concomitant]
     Active Substance: ALLOPURINOL
     Dosage: 1 DF, QD
     Route: 048
     Dates: start: 20131114
  7. ZYRTEC [Concomitant]
     Active Substance: CETIRIZINE HYDROCHLORIDE
     Indication: PREMEDICATION
     Dosage: 10 MG, QOW
     Route: 048
     Dates: start: 20180809
  8. TORSEMIDE. [Concomitant]
     Active Substance: TORSEMIDE
     Dosage: 40 MG, QD
     Route: 048
     Dates: start: 20180115
  9. POTASSIUM CHLORIDE. [Concomitant]
     Active Substance: POTASSIUM CHLORIDE
     Dosage: 2 DF, PRN
     Route: 048
     Dates: start: 20171229
  10. VIAGRA [Concomitant]
     Active Substance: SILDENAFIL CITRATE
     Dosage: 1 DF, PRN
     Route: 048
     Dates: start: 20171219
  11. FABRAZYME [Suspect]
     Active Substance: AGALSIDASE BETA
     Indication: FABRY^S DISEASE
     Dosage: 95 MG, QOW
     Route: 041
  12. EPINEPHRINE. [Concomitant]
     Active Substance: EPINEPHRINE
     Indication: ANAPHYLACTIC REACTION
     Dosage: 0.3 MG, PRN
     Route: 030
     Dates: start: 20180809
  13. VITAMIN D3 [Concomitant]
     Active Substance: CHOLECALCIFEROL
     Dosage: 1 DF, QD
     Route: 048
     Dates: start: 20161010
  14. LEVOTHYROXINE. [Concomitant]
     Active Substance: LEVOTHYROXINE
     Dosage: 37.5 UG, QD
     Route: 048
     Dates: start: 20160328
  15. RANEXA [Concomitant]
     Active Substance: RANOLAZINE
     Dosage: 1 DF, QD
     Route: 048
     Dates: start: 20170807
  16. ATORVASTATIN [Concomitant]
     Active Substance: ATORVASTATIN
     Dosage: 1 DF, QD
     Route: 048
     Dates: start: 20170407
  17. OMEPRAZOLE. [Concomitant]
     Active Substance: OMEPRAZOLE
     Dosage: 1 DF, QD
     Route: 048
     Dates: start: 20170407
  18. WARFARIN [Concomitant]
     Active Substance: WARFARIN
     Dosage: 1 DF, QD
     Route: 048
     Dates: start: 20160328
  19. FLUTICASONE. [Concomitant]
     Active Substance: FLUTICASONE
     Dosage: 2 SPRAY, QD
     Route: 055
     Dates: start: 20171219
  20. ACETAMINOPHEN. [Concomitant]
     Active Substance: ACETAMINOPHEN
     Indication: PREMEDICATION
     Dosage: 650 MG, QOW
     Route: 048
     Dates: start: 20180809
  21. SODIUM CHLORIDE. [Concomitant]
     Active Substance: SODIUM CHLORIDE
     Dosage: 0.9 %, PRN
     Route: 042
     Dates: start: 20180809
  22. MUCINEX [Concomitant]
     Active Substance: GUAIFENESIN
     Dosage: 1 DF, QD
     Route: 048
     Dates: start: 20171219
  23. VALSARTAN. [Concomitant]
     Active Substance: VALSARTAN
     Dosage: 1 DF, QD
     Route: 048
     Dates: start: 20170407

REACTIONS (4)
  - Laboratory test abnormal [Not Recovered/Not Resolved]
  - Hospitalisation [Unknown]
  - Cardioversion [Unknown]
  - Fluid overload [Not Recovered/Not Resolved]

NARRATIVE: CASE EVENT DATE: 20180912
